FAERS Safety Report 23649780 (Version 1)
Quarter: 2024Q1

REPORT INFORMATION
  Report Type: Report from Study
  Country: CA (occurrence: CA)
  Receive Date: 20240319
  Receipt Date: 20240319
  Transmission Date: 20240410
  Serious: Yes (Hospitalization, Other)
  Sender: FDA-Public Use
  Company Number: CA-SAMSUNG BIOEPIS-SB-2024-07793

PATIENT
  Sex: Male

DRUGS (1)
  1. RENFLEXIS [Suspect]
     Active Substance: INFLIXIMAB-ABDA
     Indication: Crohn^s disease
     Route: 042
     Dates: start: 20191009

REACTIONS (5)
  - Cardiac failure congestive [Unknown]
  - Prostate cancer metastatic [Unknown]
  - Dyspnoea [Unknown]
  - Pleural effusion [Unknown]
  - Off label use [Unknown]
